FAERS Safety Report 9218616 (Version 1)
Quarter: 2013Q2

REPORT INFORMATION
  Report Type: Spontaneous
  Country: US (occurrence: None)
  Receive Date: 20130405
  Receipt Date: 20130405
  Transmission Date: 20140414
  Serious: Yes (Hospitalization)
  Sender: FDA-Public Use
  Company Number: None

PATIENT
  Age: 79 Year
  Sex: Male
  Weight: 71 kg

DRUGS (1)
  1. CARBIDOPA/LEVODOPA [Suspect]
     Dosage: MG
     Route: 048
     Dates: start: 20121030

REACTIONS (1)
  - Mental status changes [None]
